FAERS Safety Report 4530124-X (Version None)
Quarter: 2004Q4

REPORT INFORMATION
  Report Type: 
  Country: None (occurrence: None)
  Receive Date: 20041214
  Receipt Date: 20041129
  Transmission Date: 20050328
  Serious: No
  Sender: FDA-Public Use
  Company Number: 04H-163-0281558-00

PATIENT
  Sex: 0

DRUGS (2)
  1. DOPAMINE HCL [Suspect]
     Indication: SEPTIC SHOCK
     Dosage: CONTINOUS, INTRAVENOUS
     Route: 042
  2. FLUIDS [Concomitant]

REACTIONS (1)
  - ACUTE MYOCARDIAL INFARCTION [None]
